FAERS Safety Report 7119963-9 (Version None)
Quarter: 2010Q4

REPORT INFORMATION
  Report Type: 
  Country: None (occurrence: None)
  Receive Date: 20101123
  Receipt Date: 20101118
  Transmission Date: 20110411
  Serious: Yes (Hospitalization, Other)
  Sender: FDA-Public Use
  Company Number: CA-ABBOTT-10P-028-0686651-00

PATIENT
  Sex: Female
  Weight: 84.444 kg

DRUGS (19)
  1. HUMIRA [Suspect]
     Indication: PSORIATIC ARTHROPATHY
     Route: 058
     Dates: start: 20100620, end: 20100718
  2. CYCLOBENAZPRINE [Concomitant]
     Indication: PRODUCT USED FOR UNKNOWN INDICATION
     Dosage: 10 MG DAILY
     Route: 048
  3. TYLENOL (CAPLET) [Concomitant]
     Indication: PAIN
     Dosage: 6 TABLETS DAILY
     Route: 048
  4. CO-ALENDRONATE [Concomitant]
     Indication: OSTEOPOROSIS
     Dosage: 70 MG DAILY
     Route: 048
  5. DILAUDID [Concomitant]
     Indication: PRODUCT USED FOR UNKNOWN INDICATION
     Dosage: 2 MG DAILY
     Route: 048
  6. CARBOCAL [Concomitant]
     Indication: PRODUCT USED FOR UNKNOWN INDICATION
     Dosage: 400 MG DAILY
     Route: 048
  7. NOVO-HYDROXYQUINE [Concomitant]
     Indication: PRODUCT USED FOR UNKNOWN INDICATION
     Route: 048
  8. HYDROMORPHONE HCL [Concomitant]
     Indication: PRODUCT USED FOR UNKNOWN INDICATION
     Dosage: 18 MG DAILY
     Route: 048
  9. GLUCOPHAGE [Concomitant]
     Indication: DIABETES MELLITUS
     Dosage: 500 MG DAILY
     Route: 048
  10. PAROXETINE HCL [Concomitant]
     Indication: DEPRESSION
     Dosage: 30 MG DAILY
     Route: 048
  11. LIPITOR [Concomitant]
     Indication: HYPERTENSION
     Dosage: 20 MG DAILY
     Route: 048
  12. PREDNISONE [Concomitant]
     Indication: ARTHRITIS
     Dosage: 5 MG DAILY
     Route: 048
  13. JAMP-ASA [Concomitant]
     Indication: PRODUCT USED FOR UNKNOWN INDICATION
     Dosage: 80 MG DAILY
     Route: 048
  14. AVANDIA [Concomitant]
     Indication: DIABETES MELLITUS
     Dosage: 4 MG DAILY
     Route: 048
  15. DIOVAN [Concomitant]
     Indication: HYPERTENSION
     Dosage: 80 MG DAILY
     Route: 048
  16. MIRAPEX [Concomitant]
     Indication: RESTLESS LEGS SYNDROME
     Dosage: 1 MG DAILY
     Route: 048
  17. PREVACID [Concomitant]
     Indication: PRODUCT USED FOR UNKNOWN INDICATION
     Dosage: 30 MG DAILY
     Route: 048
  18. LAMISIL [Concomitant]
     Indication: INFECTION
     Route: 061
  19. LOPERAMIDE [Concomitant]
     Indication: PRODUCT USED FOR UNKNOWN INDICATION
     Route: 048

REACTIONS (4)
  - ARTHRALGIA [None]
  - DYSPNOEA [None]
  - PNEUMONIA [None]
  - PULMONARY OEDEMA [None]
